FAERS Safety Report 9717548 (Version 3)
Quarter: 2015Q3

REPORT INFORMATION
  Report Type: Spontaneous
  Country: US (occurrence: US)
  Receive Date: 20131127
  Receipt Date: 20150804
  Transmission Date: 20151125
  Serious: No
  Sender: FDA-Public Use
  Company Number: US-GILEAD-2009-0020856

PATIENT
  Sex: Female

DRUGS (18)
  1. FUROSEMIDE. [Concomitant]
     Active Substance: FUROSEMIDE
  2. NTG [Concomitant]
     Active Substance: NITROGLYCERIN
  3. HUMALOG [Concomitant]
     Active Substance: INSULIN LISPRO
  4. OMNICEF [Concomitant]
     Active Substance: CEFDINIR
  5. LETAIRIS [Suspect]
     Active Substance: AMBRISENTAN
     Indication: PULMONARY ARTERIAL HYPERTENSION
     Dates: start: 20090225
  6. JANUVIA [Concomitant]
     Active Substance: SITAGLIPTIN PHOSPHATE
  7. GLYBURIDE/METFORMIN [Concomitant]
     Active Substance: GLYBURIDE\METFORMIN
  8. PLETAL [Concomitant]
     Active Substance: CILOSTAZOL
  9. CRESTOR [Concomitant]
     Active Substance: ROSUVASTATIN CALCIUM
  10. SYNTHROID [Concomitant]
     Active Substance: LEVOTHYROXINE SODIUM
  11. COREG [Concomitant]
     Active Substance: CARVEDILOL
  12. COUMADIN [Concomitant]
     Active Substance: WARFARIN SODIUM
  13. LEVEMIR [Concomitant]
     Active Substance: INSULIN DETEMIR
  14. BACTRIM DS [Concomitant]
     Active Substance: SULFAMETHOXAZOLE\TRIMETHOPRIM
  15. CLONIDINE. [Concomitant]
     Active Substance: CLONIDINE
  16. K CHLORIDE [Concomitant]
     Active Substance: POTASSIUM CHLORIDE
  17. METOPROLOL [Concomitant]
     Active Substance: METOPROLOL
  18. AVALIDE [Concomitant]
     Active Substance: HYDROCHLOROTHIAZIDE\IRBESARTAN

REACTIONS (1)
  - Dyspnoea [Recovered/Resolved]

NARRATIVE: CASE EVENT DATE: 20090223
